FAERS Safety Report 5950833-5 (Version None)
Quarter: 2008Q4

REPORT INFORMATION
  Report Type: 
  Country: None (occurrence: None)
  Receive Date: 20081112
  Receipt Date: 20081031
  Transmission Date: 20090506
  Serious: Yes (Hospitalization)
  Sender: FDA-Public Use
  Company Number: US-AMGEN-US308355

PATIENT
  Sex: Female

DRUGS (5)
  1. ENBREL [Suspect]
     Indication: RHEUMATOID ARTHRITIS
     Route: 058
     Dates: start: 20030501
  2. NAPROSYN [Concomitant]
     Route: 048
  3. LASIX [Concomitant]
     Route: 065
  4. PEPCID [Concomitant]
     Route: 065
  5. LOVENOX [Concomitant]
     Route: 065

REACTIONS (1)
  - PLEURAL EFFUSION [None]
